FAERS Safety Report 9364517 (Version 1)
Quarter: 2013Q2

REPORT INFORMATION
  Report Type: Spontaneous
  Country: US (occurrence: None)
  Receive Date: 20130621
  Receipt Date: 20130621
  Transmission Date: 20140414
  Serious: No
  Sender: FDA-Public Use
  Company Number: 2013CT000050

PATIENT
  Age: 40 Year
  Sex: Female

DRUGS (1)
  1. KORLYM [Suspect]
     Indication: DEPRESSION
     Route: 048
     Dates: start: 20130112, end: 20130118

REACTIONS (1)
  - Vaginal haemorrhage [None]
